FAERS Safety Report 13450862 (Version 1)
Quarter: 2017Q2

REPORT INFORMATION
  Report Type: Spontaneous
  Country: US (occurrence: US)
  Receive Date: 20170417
  Receipt Date: 20170417
  Transmission Date: 20170830
  Serious: Yes (Disabling)
  Sender: FDA-Public Use
  Company Number: None

PATIENT
  Age: 68 Year
  Sex: Female
  Weight: 95.4 kg

DRUGS (11)
  1. ELDERBERRY [Concomitant]
     Active Substance: HERBALS
  2. NORCO [Concomitant]
     Active Substance: ACETAMINOPHEN\HYDROCODONE BITARTRATE
  3. SPIRONOLACTONE. [Concomitant]
     Active Substance: SPIRONOLACTONE
  4. IRBESARTAN. [Concomitant]
     Active Substance: IRBESARTAN
  5. OMEGA 3-6-9 COMPLEX [Concomitant]
  6. LEVOFLOXACIN. [Suspect]
     Active Substance: LEVOFLOXACIN
     Indication: SINUSITIS
     Route: 048
     Dates: start: 20170312, end: 20170322
  7. VITAMIN B12 [Concomitant]
     Active Substance: CYANOCOBALAMIN
  8. VITAMIN D3 [Concomitant]
     Active Substance: CHOLECALCIFEROL
  9. COQ 10 [Concomitant]
     Active Substance: UBIDECARENONE
  10. FLONASE [Concomitant]
     Active Substance: FLUTICASONE PROPIONATE
  11. GUAIFENESIN/CODEINE [Concomitant]
     Active Substance: CODEINE PHOSPHATE\GUAIFENESIN

REACTIONS (4)
  - Myalgia [None]
  - Mobility decreased [None]
  - Tendon pain [None]
  - Loss of personal independence in daily activities [None]

NARRATIVE: CASE EVENT DATE: 20170412
